FAERS Safety Report 8036318-3 (Version None)
Quarter: 2012Q1

REPORT INFORMATION
  Report Type: 
  Country: None (occurrence: None)
  Receive Date: 20120111
  Receipt Date: 20111007
  Transmission Date: 20120608
  Serious: No
  Sender: FDA-Public Use
  Company Number: US-GLAXOSMITHKLINE-A0948248A

PATIENT
  Sex: Male

DRUGS (2)
  1. JALYN [Suspect]
     Indication: PROSTATIC DISORDER
     Route: 048
  2. NO CONCURRENT MEDICATION [Concomitant]

REACTIONS (1)
  - DRUG ADMINISTRATION ERROR [None]
